FAERS Safety Report 7361643-9 (Version None)
Quarter: 2011Q1

REPORT INFORMATION
  Report Type: 
  Country: None (occurrence: None)
  Receive Date: 20110318
  Receipt Date: 20110308
  Transmission Date: 20110831
  Serious: Yes (Hospitalization)
  Sender: FDA-Public Use
  Company Number: US-JNJFOC-20100111730

PATIENT
  Sex: Female
  Weight: 45 kg

DRUGS (7)
  1. INFLIXIMAB [Suspect]
     Dosage: INFUSION 2
  2. PREDNISONE [Concomitant]
  3. MESALAMINE [Concomitant]
  4. INFLIXIMAB [Suspect]
     Indication: CROHN'S DISEASE
  5. INFLIXIMAB [Suspect]
     Indication: INFLAMMATION
  6. INFLIXIMAB [Suspect]
     Dosage: INFUSION 2
  7. METHOTREXATE [Concomitant]

REACTIONS (1)
  - CROHN'S DISEASE [None]
